FAERS Safety Report 4299045-4 (Version None)
Quarter: 2004Q1

REPORT INFORMATION
  Report Type: 
  Country: None (occurrence: None)
  Receive Date: 20040217
  Receipt Date: 20040203
  Transmission Date: 20041129
  Serious: Yes (Other)
  Sender: FDA-Public Use
  Company Number: HQWYE950101OCT03

PATIENT
  Sex: Female

DRUGS (8)
  1. EFFEXOR XR [Suspect]
     Dosage: SEE IMAGE
     Route: 048
     Dates: end: 20030701
  2. EFFEXOR XR [Suspect]
     Dosage: SEE IMAGE
     Route: 048
     Dates: start: 20030701
  3. LIPITOR [Concomitant]
  4. DETROL [Concomitant]
  5. MAXZIDE [Concomitant]
  6. ACETYLSALICYLIC ACID SRT [Concomitant]
  7. CELEBREX [Concomitant]
  8. GLUCOSAMINE (GLUCOSAMINE) [Concomitant]

REACTIONS (2)
  - MACULAR OEDEMA [None]
  - VISUAL ACUITY REDUCED [None]
